FAERS Safety Report 9580553 (Version 1)
Quarter: 2013Q4

REPORT INFORMATION
  Report Type: Spontaneous
  Country: US (occurrence: None)
  Receive Date: 20131001
  Receipt Date: 20131001
  Transmission Date: 20140711
  Serious: No
  Sender: FDA-Public Use
  Company Number: None

PATIENT
  Age: 46 Year
  Sex: Male

DRUGS (1)
  1. EGRIFTA 2 MG EMD SERONO [Suspect]
     Dates: start: 20130807, end: 20130923

REACTIONS (3)
  - Nausea [None]
  - Vomiting [None]
  - Dyspnoea [None]
